FAERS Safety Report 25926431 (Version 6)
Quarter: 2025Q4

REPORT INFORMATION
  Report Type: Report from Study
  Country: US (occurrence: US)
  Receive Date: 20251015
  Receipt Date: 20251212
  Transmission Date: 20260117
  Serious: Yes (Hospitalization, Other)
  Sender: TAKEDA
  Company Number: US-TAKEDA-2025TUS090225

PATIENT
  Sex: Male
  Weight: 72 kg

DRUGS (4)
  1. TEDUGLUTIDE [Suspect]
     Active Substance: TEDUGLUTIDE
     Indication: Short-bowel syndrome
     Dosage: UNK
  2. TEDUGLUTIDE [Suspect]
     Active Substance: TEDUGLUTIDE
     Dosage: 0.3 MILLILITER, QD
     Dates: start: 20251005
  3. TEDUGLUTIDE [Suspect]
     Active Substance: TEDUGLUTIDE
     Dosage: UNK
  4. TEDUGLUTIDE [Suspect]
     Active Substance: TEDUGLUTIDE

REACTIONS (14)
  - Peripheral swelling [Recovered/Resolved]
  - Loss of consciousness [Unknown]
  - Dyspnoea [Unknown]
  - Abdominal pain [Recovered/Resolved]
  - Needle issue [Unknown]
  - Contusion [Unknown]
  - Joint swelling [Recovered/Resolved]
  - Myalgia [Unknown]
  - Rectal discharge [Unknown]
  - Device failure [Unknown]
  - Product packaging quantity issue [Unknown]
  - Haemorrhage [Unknown]
  - Somnambulism [Unknown]
  - Stress [Unknown]
